FAERS Safety Report 8940961 (Version 1)
Quarter: 2012Q4

REPORT INFORMATION
  Report Type: 
  Country: US (occurrence: US)
  Receive Date: 20121203
  Receipt Date: 20121203
  Transmission Date: 20130627
  Serious: No
  Sender: FDA-Public Use
  Company Number: US-009507513-1211USA011942

PATIENT
  Sex: Male

DRUGS (12)
  1. VICTRELIS [Suspect]
     Dosage: 800 mg, tid
     Route: 048
  2. RIBAVIRIN [Suspect]
     Dosage: 200 mg, UNK
     Route: 048
  3. PEGASYS [Suspect]
     Dosage: 180 Microgram, qw
     Route: 058
  4. CALTRATE WITH VITAMIN D [Concomitant]
  5. AMBIEN [Concomitant]
     Dosage: 5 mg, UNK
     Route: 048
  6. SERTRALINE HYDROCHLORIDE [Concomitant]
     Dosage: 5 mg, UNK
     Route: 048
  7. LISINOPRIL [Concomitant]
     Dosage: 5 mg, UNK
     Route: 048
  8. ASPIRIN [Concomitant]
     Dosage: 81 mg, UNK
  9. OMEGA-3 MARINE TRIGLYCERIDES [Concomitant]
     Route: 048
  10. MAXI MULTI [Concomitant]
     Route: 048
  11. TYLENOL [Concomitant]
     Dosage: 325 mg, UNK
  12. AMERICAN HEALTH SUPER ACEROLA PLUS VITAMIN C [Concomitant]
     Dosage: 500 mg, UNK

REACTIONS (1)
  - Red blood cell count decreased [Unknown]
